FAERS Safety Report 6312549-5 (Version None)
Quarter: 2009Q3

REPORT INFORMATION
  Report Type: 
  Country: None (occurrence: None)
  Receive Date: 20090813
  Receipt Date: 20090729
  Transmission Date: 20100115
  Serious: Yes (Other)
  Sender: FDA-Public Use
  Company Number: DSU-2009-01546

PATIENT
  Age: 44 Year
  Sex: Male
  Weight: 67.1324 kg

DRUGS (2)
  1. BENICAR [Suspect]
     Indication: HYPERTENSION
     Dosage: 40 MG (40 MG, QD), PER ORAL, 20 MG (20 MG, QD), PER ORAL
     Route: 048
     Dates: start: 20090718, end: 20090719
  2. BENICAR [Suspect]
     Indication: HYPERTENSION
     Dosage: 40 MG (40 MG, QD), PER ORAL, 20 MG (20 MG, QD), PER ORAL
     Route: 048
     Dates: start: 20090720, end: 20090722

REACTIONS (4)
  - BLOOD PRESSURE DECREASED [None]
  - DIZZINESS [None]
  - HEART RATE DECREASED [None]
  - PAIN IN EXTREMITY [None]
